FAERS Safety Report 7208835-7 (Version None)
Quarter: 2010Q4

REPORT INFORMATION
  Report Type: 
  Country: None (occurrence: None)
  Receive Date: 20101222
  Receipt Date: 20101217
  Transmission Date: 20110411
  Serious: Yes (Other)
  Sender: FDA-Public Use
  Company Number: 201SP004890

PATIENT
  Age: 27 Year
  Sex: Female
  Weight: 89.8122 kg

DRUGS (1)
  1. NUVARING [Suspect]
     Indication: CONTRACEPTION
     Dates: start: 20050101

REACTIONS (6)
  - ANGINA PECTORIS [None]
  - DEEP VEIN THROMBOSIS [None]
  - DYSPNOEA [None]
  - HEART RATE IRREGULAR [None]
  - MIGRAINE [None]
  - VARICOSE VEIN [None]
